FAERS Safety Report 7332463-6 (Version None)
Quarter: 2011Q1

REPORT INFORMATION
  Report Type: 
  Country: None (occurrence: None)
  Receive Date: 20110304
  Receipt Date: 20110225
  Transmission Date: 20110831
  Serious: Yes (Life-Threatening)
  Sender: FDA-Public Use
  Company Number: JP-ROCHE-762759

PATIENT
  Age: 61 Year
  Sex: Female

DRUGS (2)
  1. ELPLAT [Suspect]
     Dosage: NOTE: DOSAGE IS UNCERTAIN
     Route: 041
     Dates: start: 20110207, end: 20110217
  2. AVASTIN [Suspect]
     Indication: COLON CANCER
     Route: 041
     Dates: start: 20110217, end: 20110217

REACTIONS (2)
  - LARYNGEAL OEDEMA [None]
  - DYSPNOEA [None]
